FAERS Safety Report 8719699 (Version 5)
Quarter: 2018Q4

REPORT INFORMATION
  Report Type: Spontaneous
  Country: JP (occurrence: JP)
  Receive Date: 20120813
  Receipt Date: 20181128
  Transmission Date: 20190205
  Serious: Yes (Death, Other)
  Sender: FDA-Public Use
  Company Number: PHHY2012JP069439

PATIENT
  Age: 72 Year
  Sex: Male

DRUGS (9)
  1. CASODEX [Concomitant]
     Active Substance: BICALUTAMIDE
     Indication: PROSTATE CANCER
     Dosage: 80 MG, UNK
     Route: 048
     Dates: start: 20101120, end: 20120130
  2. TAKEPRON [Concomitant]
     Active Substance: LANSOPRAZOLE
     Indication: GASTRITIS
     Dosage: 15 MG, UNK
     Route: 048
     Dates: start: 20110829, end: 20120815
  3. OXYCONTIN [Concomitant]
     Active Substance: OXYCODONE HYDROCHLORIDE
     Indication: PROSTATE CANCER
     Dosage: 20 MG, UNK
     Route: 048
     Dates: start: 20120731, end: 20120819
  4. ZOMETA [Suspect]
     Active Substance: ZOLEDRONIC ACID
     Indication: METASTASES TO BONE
     Dosage: 4 MG, UNK
     Route: 041
     Dates: start: 20110902, end: 20120723
  5. MAGLAX [Concomitant]
     Active Substance: MAGNESIUM OXIDE
     Indication: CONSTIPATION
     Dosage: 990 MG, UNK
     Route: 049
     Dates: start: 20101213, end: 20120815
  6. MUCOSTA [Concomitant]
     Active Substance: REBAMIPIDE
     Indication: GASTRITIS
     Dosage: 300 MG, UNK
     Route: 048
     Dates: start: 20101213, end: 20120815
  7. MOBIC [Concomitant]
     Active Substance: MELOXICAM
     Indication: PROSTATE CANCER
     Dosage: 10 MG, UNK
     Route: 048
     Dates: start: 20110821, end: 20120815
  8. LYRICA [Concomitant]
     Active Substance: PREGABALIN
     Indication: PROSTATE CANCER
     Dosage: 75 MG, UNK
     Route: 048
     Dates: start: 20110829, end: 20120726
  9. ODYNE [Concomitant]
     Active Substance: FLUTAMIDE
     Indication: PROSTATE CANCER
     Dosage: 375 MG, UNK
     Route: 048
     Dates: start: 20120521, end: 20120726

REACTIONS (17)
  - Ulcer [Recovering/Resolving]
  - Prostatic specific antigen increased [Unknown]
  - Nausea [Fatal]
  - Pancytopenia [Fatal]
  - Osteonecrosis of jaw [Not Recovered/Not Resolved]
  - Cancer pain [Unknown]
  - Neoplasm progression [Fatal]
  - Malignant neoplasm progression [Fatal]
  - Back pain [Fatal]
  - Pain in jaw [Unknown]
  - Impaired healing [Unknown]
  - Vomiting [Fatal]
  - Disseminated intravascular coagulation [Fatal]
  - Erythema [Unknown]
  - Cachexia [Fatal]
  - Hypophagia [Unknown]
  - Exposed bone in jaw [Unknown]

NARRATIVE: CASE EVENT DATE: 20111128
